FAERS Safety Report 25563653 (Version 1)
Quarter: 2025Q3

REPORT INFORMATION
  Report Type: Spontaneous
  Country: US (occurrence: US)
  Receive Date: 20250716
  Receipt Date: 20250716
  Transmission Date: 20251021
  Serious: No
  Sender: NOVO NORDISK
  Company Number: US-NOVOPROD-1289457

PATIENT
  Sex: Female

DRUGS (2)
  1. OZEMPIC [Suspect]
     Active Substance: SEMAGLUTIDE
     Indication: Type 2 diabetes mellitus
     Route: 058
     Dates: start: 20240720
  2. METFORMIN [Concomitant]
     Active Substance: METFORMIN HYDROCHLORIDE
     Indication: Product used for unknown indication

REACTIONS (13)
  - Dyspnoea [Unknown]
  - Increased appetite [Unknown]
  - Illness [Unknown]
  - Weight decreased [Unknown]
  - Decreased appetite [Unknown]
  - Blood glucose decreased [Unknown]
  - Glycosylated haemoglobin decreased [Unknown]
  - Abdominal discomfort [Unknown]
  - Abdominal discomfort [Recovered/Resolved]
  - Device issue [Unknown]
  - Drug ineffective [Unknown]
  - Product label confusion [Unknown]
  - Incorrect dose administered [Unknown]
